FAERS Safety Report 11094194 (Version 2)
Quarter: 2015Q2

REPORT INFORMATION
  Report Type: Spontaneous
  Country: IT (occurrence: IT)
  Receive Date: 20150506
  Receipt Date: 20150518
  Transmission Date: 20150821
  Serious: Yes (Other)
  Sender: FDA-Public Use
  Company Number: IT-GLAXOSMITHKLINE-IT2015GSK060437

PATIENT
  Sex: Female

DRUGS (3)
  1. PREZISTA [Concomitant]
     Active Substance: DARUNAVIR ETHANOLATE
  2. NORVIR [Concomitant]
     Active Substance: RITONAVIR
  3. EPIVIR [Suspect]
     Active Substance: LAMIVUDINE
     Indication: HIV INFECTION
     Dosage: 300 MG, 1D
     Route: 048
     Dates: start: 201502

REACTIONS (4)
  - Asthenia [Not Recovered/Not Resolved]
  - Drug administration error [Not Recovered/Not Resolved]
  - Mental impairment [Not Recovered/Not Resolved]
  - Abdominal distension [Not Recovered/Not Resolved]

NARRATIVE: CASE EVENT DATE: 201502
